FAERS Safety Report 20988076 (Version 1)
Quarter: 2022Q2

REPORT INFORMATION
  Report Type: Spontaneous
  Country: ES (occurrence: ES)
  Receive Date: 20220621
  Receipt Date: 20220621
  Transmission Date: 20220720
  Serious: Yes (Hospitalization)
  Sender: FDA-Public Use
  Company Number: ES-OTSUKA-2022_031888

PATIENT
  Age: 33 Year
  Sex: Male

DRUGS (1)
  1. ABILIFY MAINTENA [Suspect]
     Active Substance: ARIPIPRAZOLE
     Indication: Schizophrenia
     Dosage: 800 MG (TWO INJECTIONS OF ABILIFY MAINTENA (ARIPIPRAZOLE LONG ACTING INJECTABLE), 400 MG)
     Route: 065
     Dates: start: 20211021

REACTIONS (2)
  - Psychiatric decompensation [Unknown]
  - Akathisia [Recovered/Resolved]
